FAERS Safety Report 5545882-5 (Version None)
Quarter: 2007Q4

REPORT INFORMATION
  Report Type: 
  Country: None (occurrence: None)
  Receive Date: 20071211
  Receipt Date: 20070813
  Transmission Date: 20080405
  Serious: No
  Sender: FDA-Public Use
  Company Number: US-ASTRAZENECA-2007UW21366

PATIENT
  Age: 46 Year
  Sex: Male
  Weight: 158.8 kg

DRUGS (10)
  1. SYMBICORT [Suspect]
     Indication: ASTHMA
     Dosage: 160/4.5 (2 PUFFS BID)
     Route: 055
  2. ALBUTEROL [Concomitant]
  3. DUONEB [Concomitant]
     Dosage: 1 TO 2 TIMES A DAY
  4. SINGULAIR [Concomitant]
  5. NASONEX [Concomitant]
  6. BLOOD PRESSURE MEDS [Concomitant]
  7. INSULIN [Concomitant]
  8. CHOLESTEROL MED [Concomitant]
  9. STOMACH PILL [Concomitant]
  10. WATER PILL [Concomitant]

REACTIONS (1)
  - DYSPNOEA [None]
